FAERS Safety Report 7285375-0 (Version None)
Quarter: 2011Q1

REPORT INFORMATION
  Report Type: 
  Country: None (occurrence: None)
  Receive Date: 20110210
  Receipt Date: 20110207
  Transmission Date: 20110831
  Serious: Yes (Other)
  Sender: FDA-Public Use
  Company Number: BR-ROCHE-758390

PATIENT
  Age: 70 Year
  Sex: Female
  Weight: 80 kg

DRUGS (6)
  1. MICARDIS [Concomitant]
  2. SERTRALINE [Concomitant]
  3. PURAN T4 [Concomitant]
     Indication: HYPOTHYROIDISM
  4. RIVOTRIL [Concomitant]
  5. CORTISONE [Concomitant]
     Indication: PURPURA
  6. XENICAL [Suspect]
     Route: 065
     Dates: start: 20080301

REACTIONS (1)
  - THROMBOSIS [None]
